FAERS Safety Report 4389248-2 (Version None)
Quarter: 2004Q2

REPORT INFORMATION
  Report Type: 
  Country: None (occurrence: None)
  Receive Date: 20040630
  Receipt Date: 20040617
  Transmission Date: 20050107
  Serious: Yes (Hospitalization, Other)
  Sender: FDA-Public Use
  Company Number: 2004212623CA

PATIENT
  Age: 82 Year
  Sex: Female
  Weight: 76.6 kg

DRUGS (12)
  1. FRAGMIN [Suspect]
     Indication: THROMBOSIS PROPHYLAXIS
     Dosage: 2500 IU, QD, SUBCUTANEOUS
     Route: 058
     Dates: start: 20040425
  2. PERCOCET (OXYCODONE TEREHTHALATE OXYCODONE HYDROCHLORIDE) [Concomitant]
  3. LIPITOR [Concomitant]
  4. CALCIUM CARBONATE [Concomitant]
  5. PALAFER [Concomitant]
  6. FOLIC ACID [Concomitant]
  7. PAXIL [Concomitant]
  8. TRIAMCINOLONE ACETONIDE [Concomitant]
  9. COUMADIN [Concomitant]
  10. IMOVANE [Concomitant]
  11. SENOKOT [Concomitant]
  12. COLACE (DOCUSATE SODIUM) [Concomitant]

REACTIONS (8)
  - ABDOMINAL HAEMATOMA [None]
  - HAEMOGLOBIN DECREASED [None]
  - INDURATION [None]
  - INJECTION SITE CELLULITIS [None]
  - INJECTION SITE HAEMORRHAGE [None]
  - INTERNATIONAL NORMALISED RATIO DECREASED [None]
  - NECROSIS [None]
  - RETROPERITONEAL HAEMORRHAGE [None]
